FAERS Safety Report 23059326 (Version 3)
Quarter: 2023Q4

REPORT INFORMATION
  Report Type: Report from Study
  Country: GB (occurrence: GB)
  Receive Date: 20231012
  Receipt Date: 20231124
  Transmission Date: 20240110
  Serious: Yes (Other)
  Sender: FDA-Public Use
  Company Number: GB-TEVA-2023-GB-2935163

PATIENT
  Sex: Female

DRUGS (1)
  1. AJOVY [Suspect]
     Active Substance: FREMANEZUMAB-VFRM
     Indication: Headache
     Route: 058

REACTIONS (9)
  - Seizure [Unknown]
  - Mental disorder [Unknown]
  - Anxiety [Unknown]
  - Depression [Unknown]
  - Amnesia [Unknown]
  - Weight decreased [Unknown]
  - Fall [Unknown]
  - Malaise [Unknown]
  - Ear infection [Unknown]
